FAERS Safety Report 20166112 (Version 3)
Quarter: 2022Q2

REPORT INFORMATION
  Report Type: Report from Study
  Country: FR (occurrence: FR)
  Receive Date: 20211209
  Receipt Date: 20220530
  Transmission Date: 20220721
  Serious: Yes (Hospitalization, Other)
  Sender: FDA-Public Use
  Company Number: FR-TAKEDA-2021TUS077965

PATIENT
  Age: 15 Year
  Sex: Male

DRUGS (12)
  1. IDURSULFASE [Suspect]
     Active Substance: IDURSULFASE
     Indication: Mucopolysaccharidosis II
     Dosage: 0.6 MILLIGRAM/KILOGRAM, 1/WEEK
     Route: 042
     Dates: start: 20100525
  2. IDURSULFASE [Suspect]
     Active Substance: IDURSULFASE
     Dosage: 0.48 MILLIGRAM/KILOGRAM
     Route: 042
     Dates: start: 20120927
  3. RISPERIDONE [Concomitant]
     Active Substance: RISPERIDONE
     Dosage: UNK
     Route: 065
     Dates: start: 20110408
  4. FLUTICASONE PROPIONATE [Concomitant]
     Active Substance: FLUTICASONE PROPIONATE
     Dosage: UNK
     Route: 065
     Dates: start: 20131016
  5. DICLOFENAC [Concomitant]
     Active Substance: DICLOFENAC
     Dosage: UNK
     Route: 065
     Dates: start: 20131205
  6. ALBUTEROL [Concomitant]
     Active Substance: ALBUTEROL
     Dosage: UNK
     Route: 065
     Dates: start: 20141106
  7. ZYRTEC [Concomitant]
     Active Substance: CETIRIZINE HYDROCHLORIDE
     Dosage: UNK
     Route: 065
     Dates: start: 20141106
  8. CHOLECALCIFEROL [Concomitant]
     Active Substance: CHOLECALCIFEROL
     Dosage: UNK
     Route: 065
     Dates: start: 20150910
  9. SERETIDE [Concomitant]
     Active Substance: FLUTICASONE PROPIONATE\SALMETEROL XINAFOATE
     Dosage: UNK
     Route: 065
     Dates: start: 20151026
  10. SINGULAIR [Concomitant]
     Active Substance: MONTELUKAST SODIUM
     Dosage: UNK
     Route: 065
     Dates: start: 20151026
  11. AUGMENTIN [Concomitant]
     Active Substance: AMOXICILLIN\CLAVULANATE POTASSIUM
     Dosage: UNK
     Route: 065
     Dates: start: 20160125
  12. INNOHEP [Concomitant]
     Active Substance: TINZAPARIN SODIUM
     Dosage: UNK
     Route: 065
     Dates: start: 20201118

REACTIONS (1)
  - Device related infection [Recovered/Resolved]

NARRATIVE: CASE EVENT DATE: 20211116
